FAERS Safety Report 6626498-6 (Version None)
Quarter: 2010Q1

REPORT INFORMATION
  Report Type: 
  Country: None (occurrence: None)
  Receive Date: 20100309
  Receipt Date: 20100309
  Transmission Date: 20100710
  Serious: Yes (Other)
  Sender: FDA-Public Use
  Company Number: None

PATIENT
  Age: 63 Year
  Sex: Female
  Weight: 79.3795 kg

DRUGS (2)
  1. VIVITROL [Suspect]
     Indication: ALCOHOL DETOXIFICATION
     Dosage: 380 MG INJECTION ONCE PER MONTH IM
     Route: 030
     Dates: start: 20090901, end: 20091209
  2. VIVITROL [Suspect]
     Indication: ALCOHOLISM
     Dosage: 380 MG INJECTION ONCE PER MONTH IM
     Route: 030
     Dates: start: 20090901, end: 20091209

REACTIONS (11)
  - ABSCESS STERILE [None]
  - DRUG HYPERSENSITIVITY [None]
  - INJECTION SITE HAEMATOMA [None]
  - INJECTION SITE MASS [None]
  - INJECTION SITE PAIN [None]
  - INJECTION SITE PRURITUS [None]
  - INJECTION SITE RASH [None]
  - INJECTION SITE SWELLING [None]
  - SEDATION [None]
  - SOMNOLENCE [None]
  - VOMITING [None]
